FAERS Safety Report 22156471 (Version 1)
Quarter: 2023Q1

REPORT INFORMATION
  Report Type: Spontaneous
  Country: US (occurrence: US)
  Receive Date: 20230330
  Receipt Date: 20230330
  Transmission Date: 20230418
  Serious: Yes (Hospitalization, Other)
  Sender: FDA-Public Use
  Company Number: US-GALDERMA-US2023004292

PATIENT

DRUGS (1)
  1. DOXYCYCLINE [Suspect]
     Active Substance: DOXYCYCLINE
     Indication: Product used for unknown indication
     Dosage: 1 DOSAGE FORM
     Route: 048

REACTIONS (5)
  - Gastrointestinal haemorrhage [Unknown]
  - Gastric perforation [Unknown]
  - Gastrointestinal ulcer [Unknown]
  - Platelet count increased [Unknown]
  - Gastrointestinal tract irritation [Unknown]
